FAERS Safety Report 15458184 (Version 1)
Quarter: 2018Q4

REPORT INFORMATION
  Report Type: Report from Study
  Country: DE (occurrence: DE)
  Receive Date: 20181003
  Receipt Date: 20181003
  Transmission Date: 20190204
  Serious: Yes (Other)
  Sender: FDA-Public Use
  Company Number: DE-ROCHE-2190663

PATIENT

DRUGS (4)
  1. OXALIPLATIN. [Suspect]
     Active Substance: OXALIPLATIN
     Indication: RECTAL CANCER
     Route: 065
  2. FOLINIC ACID [Suspect]
     Active Substance: LEUCOVORIN
     Indication: RECTAL CANCER
     Route: 065
  3. CAPECITABINE. [Suspect]
     Active Substance: CAPECITABINE
     Indication: RECTAL CANCER
     Route: 065
  4. 5-FLUOROURACIL [Suspect]
     Active Substance: FLUOROURACIL
     Indication: RECTAL CANCER
     Route: 065

REACTIONS (8)
  - Skin toxicity [Unknown]
  - Nausea [Unknown]
  - Sepsis [Unknown]
  - Gastrointestinal toxicity [Unknown]
  - Urogenital disorder [Unknown]
  - Diarrhoea [Unknown]
  - Dysuria [Unknown]
  - Haematotoxicity [Unknown]
